FAERS Safety Report 4376460-1 (Version None)
Quarter: 2004Q2

REPORT INFORMATION
  Report Type: 
  Country: None (occurrence: None)
  Receive Date: 20040608
  Receipt Date: 20040527
  Transmission Date: 20050107
  Serious: Yes (Death, Hospitalization)
  Sender: FDA-Public Use
  Company Number: 163-20785-03070093

PATIENT
  Age: 47 Year
  Sex: Male

DRUGS (20)
  1. THALOMID [Suspect]
     Indication: MULTIPLE MYELOMA
     Dosage: SEE IMAGE
     Route: 048
     Dates: start: 20021008, end: 20021104
  2. THALOMID [Suspect]
     Indication: MULTIPLE MYELOMA
     Dosage: SEE IMAGE
     Route: 048
     Dates: start: 20021101, end: 20030101
  3. ACYCLOVIR [Concomitant]
  4. TEQUIN [Concomitant]
  5. DOXYCYCLINE (DOXYCYCLINE) [Concomitant]
  6. ITRACONAZOLE [Concomitant]
  7. PENTAMIDINE INHALATION (PENTAMIDINE) [Concomitant]
  8. PROCRIT (ERYTHROPOIETIN) [Concomitant]
  9. PROTONIX [Concomitant]
  10. OXYCONTIN [Concomitant]
  11. CALCIUM CARBONATE (CALCIUM CARBONATE) [Concomitant]
  12. POTASSIUM CHLORIDE [Concomitant]
  13. MULTI-VITAMIN [Concomitant]
  14. FOLIC ACID [Concomitant]
  15. COMPAZINE [Concomitant]
  16. AMBIEN [Concomitant]
  17. OXYCODONE HCL [Concomitant]
  18. PREVACID [Concomitant]
  19. SENNA (SENNA) [Concomitant]
  20. G-CSF (GRANULOXYTE COLONY STIMULATING FACTOR) [Concomitant]

REACTIONS (22)
  - ASTHENIA [None]
  - BLOOD ALKALINE PHOSPHATASE INCREASED [None]
  - BLOOD BILIRUBIN INCREASED [None]
  - BLOOD CALCIUM DECREASED [None]
  - BLOOD GLUCOSE INCREASED [None]
  - BLOOD LACTATE DEHYDROGENASE INCREASED [None]
  - BLOOD SODIUM DECREASED [None]
  - BLOOD UREA DECREASED [None]
  - DECREASED APPETITE [None]
  - DYSGEUSIA [None]
  - EATING DISORDER [None]
  - FEBRILE NEUTROPENIA [None]
  - LOBAR PNEUMONIA [None]
  - MALIGNANT NEOPLASM PROGRESSION [None]
  - MUCOSAL INFLAMMATION [None]
  - MULTIPLE MYELOMA [None]
  - PAIN [None]
  - PANCYTOPENIA [None]
  - PLASMACYTOSIS [None]
  - PROTEIN TOTAL DECREASED [None]
  - PRURITUS [None]
  - STEM CELL TRANSPLANT [None]
